FAERS Safety Report 13519407 (Version 2)
Quarter: 2017Q2

REPORT INFORMATION
  Report Type: Report from Study
  Country: US (occurrence: US)
  Receive Date: 20170505
  Receipt Date: 20170517
  Transmission Date: 20170830
  Serious: Yes (Hospitalization)
  Sender: FDA-Public Use
  Company Number: US-ACTELION-A-NJ2017-153372

PATIENT
  Age: 78 Year
  Sex: Female
  Weight: 120.18 kg

DRUGS (3)
  1. OXYGEN. [Concomitant]
     Active Substance: OXYGEN
  2. OPSUMIT [Suspect]
     Active Substance: MACITENTAN
     Indication: PULMONARY ARTERIAL HYPERTENSION
     Dosage: 10 MG, QD
     Route: 048
  3. OPSUMIT [Suspect]
     Active Substance: MACITENTAN
     Dosage: 10 UNK, UNK
     Route: 048

REACTIONS (23)
  - Aortic valve stenosis [Unknown]
  - Sinusitis [Unknown]
  - Large intestine polyp [Unknown]
  - Dyspnoea [Unknown]
  - Wheezing [Unknown]
  - Bronchitis [Unknown]
  - Iron deficiency anaemia [Unknown]
  - Asthma [Unknown]
  - Transfusion [Unknown]
  - Large intestinal polypectomy [Unknown]
  - Diverticulum intestinal [Unknown]
  - Cardiac failure congestive [Unknown]
  - Respiratory tract infection [Unknown]
  - Blood creatinine increased [Unknown]
  - Hypotension [Unknown]
  - Platelet count decreased [Recovering/Resolving]
  - Acute kidney injury [Unknown]
  - Blood urea increased [Unknown]
  - Gastric disorder [Unknown]
  - Tricuspid valve incompetence [Unknown]
  - Colostomy [Unknown]
  - Haemoglobin decreased [Unknown]
  - Haematocrit decreased [Unknown]
